FAERS Safety Report 21305869 (Version 3)
Quarter: 2022Q4

REPORT INFORMATION
  Report Type: Spontaneous
  Country: US (occurrence: US)
  Receive Date: 20220908
  Receipt Date: 20221204
  Transmission Date: 20230113
  Serious: Yes (Other)
  Sender: FDA-Public Use
  Company Number: US-JNJFOC-20220865704

PATIENT
  Age: 56 Year
  Sex: Female

DRUGS (5)
  1. ELMIRON [Suspect]
     Active Substance: PENTOSAN POLYSULFATE SODIUM
     Indication: Cystitis interstitial
     Dosage: 2/100 MG A DAY
     Route: 048
     Dates: start: 20000728, end: 201604
  2. SIMVASTATIN [Concomitant]
     Active Substance: SIMVASTATIN
     Indication: Blood pressure measurement
     Dates: start: 200910, end: 201511
  3. METRONIDAZOLE [Concomitant]
     Active Substance: METRONIDAZOLE
     Indication: Infection
     Dates: start: 2010, end: 2015
  4. ALENDRONATE [Concomitant]
     Active Substance: ALENDRONATE SODIUM
     Indication: Osteoporosis
     Dates: start: 201011, end: 201511
  5. ANASTROZOLE [Concomitant]
     Active Substance: ANASTROZOLE
     Indication: Chemotherapy
     Dates: start: 201011, end: 201505

REACTIONS (4)
  - Dry age-related macular degeneration [Not Recovered/Not Resolved]
  - Retinal injury [Unknown]
  - Maculopathy [Unknown]
  - Off label use [Unknown]

NARRATIVE: CASE EVENT DATE: 20000728
